FAERS Safety Report 21152739 (Version 2)
Quarter: 2023Q1

REPORT INFORMATION
  Report Type: Spontaneous
  Country: US (occurrence: US)
  Receive Date: 20220730
  Receipt Date: 20230201
  Transmission Date: 20230418
  Serious: No
  Sender: FDA-Public Use
  Company Number: US-SA-SAC20220726001648

PATIENT
  Sex: Male

DRUGS (7)
  1. DUPIXENT [Suspect]
     Active Substance: DUPILUMAB
     Indication: Dermatitis atopic
     Dosage: 300MG, QOW
     Route: 058
  2. ASPIRIN [Concomitant]
     Active Substance: ASPIRIN
  3. BENICAR [Concomitant]
     Active Substance: OLMESARTAN MEDOXOMIL
  4. CRESTOR [Concomitant]
     Active Substance: ROSUVASTATIN CALCIUM
  5. LEVOTHYROXINE SODIUM [Concomitant]
     Active Substance: LEVOTHYROXINE SODIUM
  6. NEXIUM I.V. [Concomitant]
     Active Substance: ESOMEPRAZOLE SODIUM
  7. ZYRTEC [Concomitant]
     Active Substance: CETIRIZINE HYDROCHLORIDE

REACTIONS (3)
  - Swelling face [Unknown]
  - Erythema [Unknown]
  - Oral herpes [Unknown]
